FAERS Safety Report 4690754-1 (Version None)
Quarter: 2005Q2

REPORT INFORMATION
  Report Type: 
  Country: None (occurrence: None)
  Receive Date: 20050615
  Receipt Date: 20050223
  Transmission Date: 20051028
  Serious: Yes (Hospitalization)
  Sender: FDA-Public Use
  Company Number: US-MERCK-0502USA03483

PATIENT
  Age: 64 Year
  Sex: Male
  Weight: 84 kg

DRUGS (5)
  1. VIOXX [Suspect]
     Indication: ARTHRITIS
     Route: 048
     Dates: start: 19990101, end: 20040101
  2. SINGULAIR [Concomitant]
     Route: 055
  3. COMBIVENT [Concomitant]
     Indication: EMPHYSEMA
     Route: 055
  4. AZMACORT [Concomitant]
     Indication: EMPHYSEMA
     Route: 065
  5. ADVAIR [Concomitant]
     Route: 055

REACTIONS (5)
  - BLOOD CHOLESTEROL INCREASED [None]
  - CEREBROVASCULAR ACCIDENT [None]
  - HYPERTENSION [None]
  - PAIN [None]
  - TRANSIENT ISCHAEMIC ATTACK [None]
